FAERS Safety Report 10550779 (Version 2)
Quarter: 2015Q1

REPORT INFORMATION
  Report Type: Spontaneous
  Country: US (occurrence: None)
  Receive Date: 20141020
  Receipt Date: 20150120
  Transmission Date: 20150720
  Serious: No
  Sender: FDA-Public Use
  Company Number: AEGR000579

PATIENT
  Age: 56 Year
  Sex: Female
  Weight: 75.7 kg

DRUGS (22)
  1. JUXTAPID [Suspect]
     Active Substance: LOMITAPIDE MESYLATE
     Indication: LOW DENSITY LIPOPROTEIN INCREASED
     Route: 048
     Dates: start: 20140702
  2. LIPITOR [Concomitant]
     Active Substance: ATORVASTATIN CALCIUM
  3. METOPROLOL  (METOPROLOL TARTRATE [Concomitant]
  4. FLUOXETINE (FLUOXETINE HYDROCFHLORIDE) [Concomitant]
  5. VITAMIN E (TOCOPHERYL ACID SUCCINATE) [Concomitant]
  6. HYZAAR (HYDROCHLOROTHIAZIDE, LOSARTAN POTASSIUM) [Concomitant]
  7. ASPIRIN (ACETYLSALICYLIC ACID) [Concomitant]
     Active Substance: ASPIRIN
  8. AMLODIPINE [Concomitant]
     Active Substance: AMLODIPINE BESYLATE
  9. NOVOLOG MIX (INSULIN ASPART, INSULIN ASPART PROTAMINE)??? [Concomitant]
  10. VITAMIN B COMPLEX WITH C (ASCORBIC ACID, CALCIUM PANTOTHENATE, CYANOCOBALAMIN, NICOTINEAMIDE, PYRIDOXINE HYDROCHLORIDE, RIBOFLAVIN, THIAMINE MONONITRATE)? [Concomitant]
  11. ACTOS [Concomitant]
     Active Substance: PIOGLITAZONE HYDROCHLORIDE
  12. OMEGA 3 6 9 (OMEGA 9 FATTY ACIDS, OMEGA-3 FATTY ACIDS, OMEGA-6 FATTY ACIDS) [Concomitant]
  13. BENAZEPRIL [Concomitant]
     Active Substance: BENAZEPRIL\BENAZEPRIL HYDROCHLORIDE
  14. METOCLOPRAMIDE HCL [Concomitant]
     Active Substance: METOCLOPRAMIDE HYDROCHLORIDE
  15. FERROUS SULFATE [Concomitant]
     Active Substance: FERROUS SULFATE\FERROUS SULFATE, DRIED
  16. FOLIC ACID. [Concomitant]
     Active Substance: FOLIC ACID
  17. RENA-VITE (ASCORDIC ACID, BIOTIN, CALCIUM PANTOTHENATE, CYANOCOBALAMIN, FOLIC ACID, NICOTINAMIDE, PYRIDOXINE HYDROCHLORIDE, RIBOFLAVIN, THIAMINE HYDROCHLORIDE)?21)? [Concomitant]
  18. FOSRENOL (LANTHANUM CARBONATE) [Concomitant]
  19. DOCUSATE [Concomitant]
     Active Substance: DOCUSATE
  20. EFFEXOR (VENLAFAXINE HYDROCHLORIDE) [Concomitant]
  21. LANTUS (INSULIN GLARINE) [Concomitant]
  22. OMEPRAZOLE. [Concomitant]
     Active Substance: OMEPRAZOLE

REACTIONS (3)
  - Flatulence [None]
  - Nausea [None]
  - Diarrhoea [None]

NARRATIVE: CASE EVENT DATE: 20140702
